FAERS Safety Report 8355307-2 (Version None)
Quarter: 2012Q2

REPORT INFORMATION
  Report Type: 
  Country: None (occurrence: None)
  Receive Date: 20120511
  Receipt Date: 20120426
  Transmission Date: 20120825
  Serious: No
  Sender: FDA-Public Use
  Company Number: US-BAYER-2012-043686

PATIENT
  Age: 94 Year
  Sex: Female
  Weight: 56 kg

DRUGS (1)
  1. ALEVE (CAPLET) [Suspect]
     Indication: ARTHRALGIA
     Dosage: 2 TAB AS NEEDED
     Dates: end: 20120425

REACTIONS (4)
  - NAUSEA [None]
  - RETCHING [None]
  - GASTRIC DISORDER [None]
  - VOMITING [None]
